FAERS Safety Report 9500591 (Version 1)
Quarter: 2013Q3

REPORT INFORMATION
  Report Type: Report from Study
  Country: US (occurrence: US)
  Receive Date: 20130905
  Receipt Date: 20130905
  Transmission Date: 20140515
  Serious: Yes (Death)
  Sender: FDA-Public Use
  Company Number: US-SANOFI-AVENTIS-2013SA088459

PATIENT
  Age: 70 Year
  Sex: Female
  Weight: 43.73 kg

DRUGS (20)
  1. CABAZITAXEL [Suspect]
     Indication: NON-SMALL CELL LUNG CANCER
     Route: 042
     Dates: start: 20130718, end: 20130718
  2. CABAZITAXEL [Suspect]
     Indication: NON-SMALL CELL LUNG CANCER
     Route: 042
     Dates: start: 20130808, end: 20130808
  3. CABAZITAXEL [Suspect]
     Indication: NON-SMALL CELL LUNG CANCER
     Route: 042
     Dates: start: 20130808, end: 20130808
  4. CABAZITAXEL [Suspect]
     Indication: NON-SMALL CELL LUNG CANCER
     Route: 042
     Dates: start: 20130718, end: 20130718
  5. MEDROL [Concomitant]
     Indication: DYSPNOEA
     Route: 048
     Dates: start: 20130808
  6. NEULASTA [Concomitant]
     Indication: NEUTROPHIL COUNT DECREASED
     Route: 058
     Dates: start: 20130809
  7. LEVAQUIN [Concomitant]
     Indication: DIARRHOEA
     Route: 048
     Dates: start: 20130815
  8. LEVAQUIN [Concomitant]
     Indication: DIARRHOEA
     Route: 048
     Dates: start: 20130729
  9. LOMOTIL [Concomitant]
     Indication: DIARRHOEA
     Route: 048
     Dates: start: 20130815
  10. PREDNISONE [Concomitant]
     Indication: DYSPNOEA
     Route: 048
     Dates: start: 20130815
  11. DIFLUCAN [Concomitant]
     Route: 048
     Dates: start: 20130815
  12. KCL [Concomitant]
     Indication: DIARRHOEA
     Route: 042
     Dates: start: 20130815
  13. FOLIC ACID [Concomitant]
     Indication: NUTRITIONAL SUPPLEMENTATION
     Route: 048
     Dates: start: 2010
  14. CALCIUM [Concomitant]
     Indication: NUTRITIONAL SUPPLEMENTATION
     Dosage: DOSE: 1200 (UNITS UNKOWN)
     Route: 048
     Dates: start: 2010
  15. VITAMIN D3 [Concomitant]
     Indication: NUTRITIONAL SUPPLEMENTATION
     Dosage: DOSE: 1000 (UNITS NOT PROVIDED)
     Route: 048
     Dates: start: 2010
  16. VITAMIN B COMPLEX [Concomitant]
     Indication: NUTRITIONAL SUPPLEMENTATION
     Route: 048
     Dates: start: 2010
  17. PREVACID [Concomitant]
     Indication: GASTROOESOPHAGEAL REFLUX DISEASE
     Route: 048
     Dates: start: 2008
  18. NICORETTE GUM [Concomitant]
     Indication: TOBACCO ABUSE
     Route: 048
     Dates: start: 2005
  19. TUMS [Concomitant]
     Indication: GASTROOESOPHAGEAL REFLUX DISEASE
     Route: 048
     Dates: start: 2008
  20. ESZOPICLONE [Concomitant]
     Indication: INSOMNIA
     Route: 048
     Dates: start: 20130801

REACTIONS (1)
  - Death [Fatal]
